FAERS Safety Report 9310353 (Version 1)
Quarter: 2013Q2

REPORT INFORMATION
  Report Type: Spontaneous
  Country: US (occurrence: US)
  Receive Date: 20130527
  Receipt Date: 20130527
  Transmission Date: 20140414
  Serious: Yes (Other)
  Sender: FDA-Public Use
  Company Number: US-PFIZER INC-2013159804

PATIENT
  Age: 54 Year
  Sex: Male

DRUGS (1)
  1. RAPAMUNE [Suspect]
     Indication: LIVER TRANSPLANT
     Dosage: 1 MG, 2X/DAY
     Dates: start: 20120719

REACTIONS (2)
  - Arthropathy [Recovering/Resolving]
  - Off label use [Unknown]
